FAERS Safety Report 5236885-9 (Version None)
Quarter: 2007Q1

REPORT INFORMATION
  Report Type: 
  Country: None (occurrence: None)
  Receive Date: 20070213
  Receipt Date: 20070209
  Transmission Date: 20070707
  Serious: Yes (Death, Disabling, Other)
  Sender: FDA-Public Use
  Company Number: PHRM2007FR00512

PATIENT
  Age: 60 Year
  Sex: Female

DRUGS (7)
  1. NEURONTIN [Concomitant]
  2. SKENAN [Concomitant]
  3. SERESTA [Concomitant]
  4. CORTANCYL [Concomitant]
  5. OMEPRAZOLE [Concomitant]
  6. AROMASIN [Concomitant]
  7. ZOMETA [Suspect]
     Indication: METASTASES TO BONE
     Dosage: 4 MG, QMO
     Route: 042
     Dates: start: 20020320, end: 20060412

REACTIONS (3)
  - BREAST CANCER [None]
  - OSTEONECROSIS [None]
  - TOOTH EXTRACTION [None]
